FAERS Safety Report 18032771 (Version 4)
Quarter: 2021Q2

REPORT INFORMATION
  Report Type: Spontaneous
  Country: CA (occurrence: CA)
  Receive Date: 20200716
  Receipt Date: 20210414
  Transmission Date: 20210717
  Serious: Yes (Life-Threatening, Hospitalization, Other)
  Sender: FDA-Public Use
  Company Number: CA-PFIZER INC-2019395799

PATIENT
  Age: 54 Year
  Sex: Male

DRUGS (10)
  1. FAMOTIDINE. [Concomitant]
     Active Substance: FAMOTIDINE
     Dosage: 40 MG, 1X/DAY
     Route: 048
  2. ENEM [Concomitant]
     Dosage: 1 DF, DAILY AT BEDTIME
  3. PREDNISONE. [Concomitant]
     Active Substance: PREDNISONE
     Dosage: 40 MG
     Route: 065
     Dates: start: 2020
  4. PENTASA [Concomitant]
     Active Substance: MESALAMINE
     Dosage: 4 G
  5. XELJANZ [Suspect]
     Active Substance: TOFACITINIB CITRATE
     Indication: COLITIS ULCERATIVE
     Dosage: 5 MG, 2X/DAY (BID)
     Route: 048
     Dates: start: 20190906
  6. PANTOPRAZOLE MAGNESIUM [Concomitant]
     Active Substance: PANTOPRAZOLE MAGNESIUM
     Dosage: 40 MG, 1X/DAY
     Route: 048
  7. CORTIMENT [HYDROCORTISONE ACETATE] [Concomitant]
     Active Substance: HYDROCORTISONE ACETATE
     Dosage: 9 DF
     Route: 048
     Dates: start: 20191204
  8. CORTIMENT [HYDROCORTISONE ACETATE] [Concomitant]
     Active Substance: HYDROCORTISONE ACETATE
     Indication: DEFAECATION URGENCY
     Dosage: 9 MG
     Route: 048
     Dates: start: 20191204
  9. PENTASA [Concomitant]
     Active Substance: MESALAMINE
     Dosage: 500 MG
  10. SYNTHROID [Concomitant]
     Active Substance: LEVOTHYROXINE SODIUM
     Dosage: 200 UG
     Route: 048

REACTIONS (7)
  - Haemorrhoidal haemorrhage [Unknown]
  - Off label use [Unknown]
  - Haemorrhoids [Unknown]
  - Irritability [Unknown]
  - Proctitis [Unknown]
  - Drug ineffective [Unknown]
  - Condition aggravated [Not Recovered/Not Resolved]

NARRATIVE: CASE EVENT DATE: 2019
